FAERS Safety Report 8386630-3 (Version None)
Quarter: 2012Q2

REPORT INFORMATION
  Report Type: 
  Country: None (occurrence: None)
  Receive Date: 20120525
  Receipt Date: 20120105
  Transmission Date: 20120825
  Serious: No
  Sender: FDA-Public Use
  Company Number: US-GLAXOSMITHKLINE-A0960223A

PATIENT
  Age: 70 Year
  Sex: Female
  Weight: 66 kg

DRUGS (3)
  1. DECADRON [Concomitant]
     Dosage: 10MG CYCLIC
     Dates: start: 20111219, end: 20111221
  2. HYCAMTIN [Suspect]
     Indication: SMALL CELL LUNG CANCER STAGE UNSPECIFIED
     Dosage: 1.5MGM2 PER DAY
     Route: 042
     Dates: start: 20111219, end: 20111221
  3. ZOFRAN [Concomitant]
     Dosage: 32MG CYCLIC
     Route: 042
     Dates: start: 20111219, end: 20111221

REACTIONS (1)
  - DIARRHOEA [None]
